FAERS Safety Report 12214534 (Version 1)
Quarter: 2016Q1

REPORT INFORMATION
  Report Type: Report from Study
  Country: KR (occurrence: KR)
  Receive Date: 20160328
  Receipt Date: 20160328
  Transmission Date: 20160526
  Serious: Yes (Other)
  Sender: FDA-Public Use
  Company Number: KR-ASTELLAS-2016US010859

PATIENT

DRUGS (2)
  1. SORAFENIB [Suspect]
     Active Substance: SORAFENIB
     Indication: NON-SMALL CELL LUNG CANCER
     Route: 065
  2. ERLOTINIB [Suspect]
     Active Substance: ERLOTINIB
     Indication: NON-SMALL CELL LUNG CANCER
     Route: 065

REACTIONS (4)
  - Neutropenia [Unknown]
  - Hypokalaemia [Unknown]
  - Dizziness [Unknown]
  - Deep vein thrombosis [Unknown]
